FAERS Safety Report 6279347-2 (Version None)
Quarter: 2009Q3

REPORT INFORMATION
  Report Type: 
  Country: None (occurrence: None)
  Receive Date: 20090723
  Receipt Date: 20081112
  Transmission Date: 20100115
  Serious: No
  Sender: FDA-Public Use
  Company Number: US-AMGEN-KDL318618

PATIENT
  Sex: Male

DRUGS (10)
  1. EPOGEN [Suspect]
     Indication: ANAEMIA
     Route: 058
     Dates: start: 20081104
  2. FISH OIL [Concomitant]
  3. POTASSIUM CHLORIDE [Concomitant]
  4. FOSINOPRIL SODIUM [Concomitant]
  5. FUROSEMIDE [Concomitant]
  6. COUMADIN [Concomitant]
  7. MULTI-VITAMINS [Concomitant]
  8. CARVEDILOL [Concomitant]
  9. MAGNESIUM OXIDE [Concomitant]
  10. ALLOPURINOL [Concomitant]

REACTIONS (3)
  - LOCAL SWELLING [None]
  - PAIN [None]
  - SENSATION OF PRESSURE [None]
